FAERS Safety Report 16135115 (Version 1)
Quarter: 2019Q1

REPORT INFORMATION
  Report Type: Spontaneous
  Country: US (occurrence: US)
  Receive Date: 20190329
  Receipt Date: 20190329
  Transmission Date: 20190418
  Serious: Yes (Other)
  Sender: FDA-Public Use
  Company Number: US-BAUSCH-BL-2019-009324

PATIENT
  Age: 4 Year
  Sex: Male

DRUGS (2)
  1. DIAZEPAM RECTAL GEL [Suspect]
     Active Substance: DIAZEPAM
     Dosage: DOSE INCREASED
     Route: 065
     Dates: start: 201903
  2. DIAZEPAM RECTAL GEL [Suspect]
     Active Substance: DIAZEPAM
     Indication: SEIZURE
     Route: 065
     Dates: start: 201903

REACTIONS (1)
  - Drug ineffective [Recovered/Resolved]

NARRATIVE: CASE EVENT DATE: 201903
